FAERS Safety Report 8623329-X (Version None)
Quarter: 2012Q3

REPORT INFORMATION
  Report Type: 
  Country: None (occurrence: None)
  Receive Date: 20120827
  Receipt Date: 20120821
  Transmission Date: 20120928
  Serious: Yes (Hospitalization, Other)
  Sender: FDA-Public Use
  Company Number: PHHY2012BR066554

PATIENT
  Sex: Male

DRUGS (2)
  1. OMEPRAZOLE [Suspect]
  2. IMATINIB MESYLATE [Suspect]
     Indication: CHRONIC MYELOID LEUKAEMIA
     Dosage: 400 MG, UNK
     Route: 048

REACTIONS (3)
  - INTESTINAL OBSTRUCTION [None]
  - ULCER [None]
  - ABDOMINAL ADHESIONS [None]
